FAERS Safety Report 22659075 (Version 1)
Quarter: 2023Q2

REPORT INFORMATION
  Report Type: Spontaneous
  Country: US (occurrence: US)
  Receive Date: 20230630
  Receipt Date: 20230630
  Transmission Date: 20230721
  Serious: No
  Sender: FDA-Public Use
  Company Number: US-GALDERMA-US2023008622

PATIENT

DRUGS (9)
  1. PROACTIV MD ADAPALENE ACNE TREATMENT [Suspect]
     Active Substance: ADAPALENE
     Indication: Acne
     Dosage: 1 DOSAGE FORM, QD, ONCE A DAY, PEA SIZE TO DIME SIZED AMOUNT
     Route: 061
     Dates: start: 202305, end: 202305
  2. PROACTIV MD ADAPALENE ACNE TREATMENT [Suspect]
     Active Substance: ADAPALENE
     Dosage: 1 DOSAGE FORM, QOD, EVERY OTHER DAY, PEA SIZE TO DIME SIZED AMOUNT
     Route: 061
     Dates: start: 202305, end: 202305
  3. INSULIN NOS [Concomitant]
     Active Substance: INSULIN NOS
     Indication: Product used for unknown indication
     Route: 065
  4. PROACTIV CLEAR SKIN SPF 30 [Concomitant]
     Active Substance: AVOBENZONE\OCTISALATE\OCTOCRYLENE
     Indication: Acne
     Dosage: 1 DOSAGE FORM, QD, DAILY, PEA OR DIME SIZED AMOUNT
     Route: 061
     Dates: start: 202305, end: 202305
  5. PROACTIV CLEAR SKIN SPF 30 [Concomitant]
     Active Substance: AVOBENZONE\OCTISALATE\OCTOCRYLENE
     Dosage: 1 DOSAGE FORM, QOD, PEA OR DIME SIZED AMOUNT
     Route: 061
     Dates: start: 202305, end: 202305
  6. Proactiv MD Ultra Gentle Cleanser [Concomitant]
     Indication: Acne
     Dosage: 1 DOSAGE FORM, QD DAILY, PEA OR DIME SIZED AMOUNT
     Route: 061
     Dates: start: 202305, end: 202305
  7. Proactiv MD Ultra Gentle Cleanser [Concomitant]
     Dosage: 1 DOSAGE FORM, QOD EVERY OTHER DAY, PEA OR DIME SIZED AMOUNT
     Route: 061
     Dates: start: 202305, end: 202305
  8. Proactiv MD Ultra Hydrating Moisturizer [Concomitant]
     Indication: Acne
     Dosage: 1 DOSAGE FORM, QD, DAILY, PEA OR DIME SIZE
     Route: 061
     Dates: start: 202305, end: 202305
  9. Proactiv MD Ultra Hydrating Moisturizer [Concomitant]
     Dosage: 1 DOSAGE FORM, QOD, EVERY OTHER DAY, PEA OR DIME SIZE
     Route: 061
     Dates: start: 202305, end: 202305

REACTIONS (3)
  - Skin burning sensation [Recovered/Resolved]
  - Skin irritation [Recovered/Resolved]
  - Erythema [Recovered/Resolved]

NARRATIVE: CASE EVENT DATE: 20230501
